FAERS Safety Report 21746945 (Version 1)
Quarter: 2022Q4

REPORT INFORMATION
  Report Type: Spontaneous
  Country: FR (occurrence: FR)
  Receive Date: 20221219
  Receipt Date: 20221219
  Transmission Date: 20230113
  Serious: Yes (Hospitalization)
  Sender: FDA-Public Use
  Company Number: FR-SA-SAC20221216000865

PATIENT
  Sex: Female

DRUGS (1)
  1. DUPIXENT [Suspect]
     Active Substance: DUPILUMAB
     Indication: Dermatitis atopic
     Dosage: UNK
     Route: 065
     Dates: start: 2022, end: 202212

REACTIONS (4)
  - Arthritis [Unknown]
  - Arthralgia [Unknown]
  - Myalgia [Unknown]
  - Asthenia [Unknown]

NARRATIVE: CASE EVENT DATE: 20221213
